FAERS Safety Report 9233467 (Version 1)
Quarter: 2013Q2

REPORT INFORMATION
  Report Type: Spontaneous
  Country: US (occurrence: US)
  Receive Date: 20130416
  Receipt Date: 20130416
  Transmission Date: 20140414
  Serious: No
  Sender: FDA-Public Use
  Company Number: US-MYLANLABS-2013S1004197

PATIENT
  Age: 34 Year
  Sex: Male
  Weight: 81.65 kg

DRUGS (2)
  1. PAROXETINE TABLETS USP [Suspect]
     Indication: DEPRESSION
     Route: 048
     Dates: start: 2011
  2. MIRTAZAPINE [Concomitant]
     Route: 048

REACTIONS (3)
  - Chills [Not Recovered/Not Resolved]
  - Muscle spasms [Not Recovered/Not Resolved]
  - Hyperhidrosis [Not Recovered/Not Resolved]
